FAERS Safety Report 8816546 (Version 1)
Quarter: 2012Q4

REPORT INFORMATION
  Report Type: Spontaneous
  Country: US (occurrence: None)
  Receive Date: 20121001
  Receipt Date: 20121001
  Transmission Date: 20130627
  Serious: Yes (Other)
  Sender: FDA-Public Use
  Company Number: None

PATIENT
  Age: 58 Year
  Sex: Female
  Weight: 83.92 kg

DRUGS (1)
  1. FLEBOGAMMA [Suspect]
     Indication: LUNG TRANSPLANT REJECTION
     Route: 041
     Dates: start: 20120925, end: 20120927

REACTIONS (5)
  - Feeling abnormal [None]
  - Dyspnoea [None]
  - Asthenia [None]
  - Generalised erythema [None]
  - Infusion related reaction [None]
